FAERS Safety Report 6233770-0 (Version None)
Quarter: 2009Q2

REPORT INFORMATION
  Report Type: 
  Country: None (occurrence: None)
  Receive Date: 20090616
  Receipt Date: 20090616
  Transmission Date: 20091009
  Serious: Yes (Other)
  Sender: FDA-Public Use
  Company Number: None

PATIENT
  Age: 28 Year
  Sex: Male
  Weight: 68.0396 kg

DRUGS (2)
  1. ZYPREXA [Suspect]
     Indication: BIPOLAR DISORDER
     Dosage: 10 MG PER DAY PO
     Route: 048
     Dates: start: 20080806, end: 20090419
  2. ZYPREXA [Suspect]
     Indication: SCHIZOAFFECTIVE DISORDER
     Dosage: 10 MG PER DAY PO
     Route: 048
     Dates: start: 20080806, end: 20090419

REACTIONS (5)
  - BURNING SENSATION [None]
  - FEAR [None]
  - PITUITARY-DEPENDENT CUSHING'S SYNDROME [None]
  - SENSORY LOSS [None]
  - WEIGHT INCREASED [None]
